FAERS Safety Report 10024962 (Version 1)
Quarter: 2014Q1

REPORT INFORMATION
  Report Type: Spontaneous
  Country: PH (occurrence: PH)
  Receive Date: 20140320
  Receipt Date: 20140320
  Transmission Date: 20141002
  Serious: Yes (Death, Other)
  Sender: FDA-Public Use
  Company Number: PH-009507513-1403PHL008439

PATIENT
  Age: 55 Year
  Sex: Female

DRUGS (1)
  1. COZAAR [Suspect]
     Dosage: 100 MG, ONE TABLET ONCE A DAY
     Route: 048
     Dates: start: 20121011, end: 20131031

REACTIONS (1)
  - Cardiac arrest [Fatal]
